FAERS Safety Report 4636971-8 (Version None)
Quarter: 2005Q2

REPORT INFORMATION
  Report Type: 
  Country: None (occurrence: None)
  Receive Date: 20050414
  Receipt Date: 20050323
  Transmission Date: 20051028
  Serious: No
  Sender: FDA-Public Use
  Company Number: 2005UW04564

PATIENT

DRUGS (4)
  1. SEROQUEL [Suspect]
  2. GEODON [Concomitant]
  3. WELLBUTRIN [Concomitant]
  4. AVANDIA [Concomitant]

REACTIONS (1)
  - AGRANULOCYTOSIS [None]
